FAERS Safety Report 22040038 (Version 2)
Quarter: 2023Q4

REPORT INFORMATION
  Report Type: Spontaneous
  Country: US (occurrence: US)
  Receive Date: 20230227
  Receipt Date: 20231026
  Transmission Date: 20240109
  Serious: No
  Sender: FDA-Public Use
  Company Number: US-BRISTOL-MYERS SQUIBB COMPANY-2023-028319

PATIENT
  Age: 57 Year
  Sex: Female
  Weight: 61.7 kg

DRUGS (1)
  1. POMALYST [Suspect]
     Active Substance: POMALIDOMIDE
     Indication: Plasma cell myeloma
     Dosage: FREQUENCY: ONE EVERY DAY FOR 21 DAYS AND OFF FOR 7 DAYS.
     Route: 048
     Dates: start: 20200218

REACTIONS (1)
  - Illness [Not Recovered/Not Resolved]
